FAERS Safety Report 4501072-6 (Version None)
Quarter: 2004Q4

REPORT INFORMATION
  Report Type: 
  Country: None (occurrence: None)
  Receive Date: 20041115
  Receipt Date: 20041108
  Transmission Date: 20050328
  Serious: Yes (Hospitalization, Other)
  Sender: FDA-Public Use
  Company Number: PHEH2004US12043

PATIENT
  Age: 55 Year
  Sex: Male

DRUGS (5)
  1. GLEEVEC [Suspect]
     Indication: BREAST CANCER MALE
     Dosage: 400 MG, QD
     Route: 048
     Dates: start: 20040701, end: 20040901
  2. GLEEVEC [Suspect]
     Dosage: NO TREATMENT
     Dates: start: 20040901, end: 20041001
  3. GLEEVEC [Suspect]
     Dosage: 100 MG, QD
     Route: 048
     Dates: start: 20041001
  4. VALIUM [Concomitant]
  5. TYLENOL [Concomitant]

REACTIONS (4)
  - ASTHENIA [None]
  - BONE PAIN [None]
  - METASTASES TO BONE [None]
  - VOMITING [None]
